FAERS Safety Report 5966023-6 (Version None)
Quarter: 2008Q4

REPORT INFORMATION
  Report Type: 
  Country: None (occurrence: None)
  Receive Date: 20081125
  Receipt Date: 20081111
  Transmission Date: 20090506
  Serious: Yes (Hospitalization, Other)
  Sender: FDA-Public Use
  Company Number: ES-GENENTECH-271864

PATIENT
  Sex: Female

DRUGS (13)
  1. BLINDED BEVACIZUMAB [Suspect]
     Indication: HODGKIN'S DISEASE
     Dosage: 1 UNK, Q21D
     Route: 042
     Dates: start: 20081027
  2. CYCLOPHOSPHAMIDE [Suspect]
     Indication: HODGKIN'S DISEASE
     Dosage: 1 UNK, Q21D
     Route: 042
     Dates: start: 20081027
  3. DOXORUBICIN HCL [Suspect]
     Indication: HODGKIN'S DISEASE
     Dosage: 1 UNK, Q21D
     Route: 042
     Dates: start: 20081027
  4. BLINDED PLACEBO [Suspect]
     Indication: HODGKIN'S DISEASE
     Dosage: 1 UNK, Q21D
     Route: 042
     Dates: start: 20081027
  5. PREDNISONE TAB [Suspect]
     Indication: HODGKIN'S DISEASE
     Dosage: 1 UNK, Q21D
     Route: 042
     Dates: start: 20081027
  6. BLINDED RITUXIMAB [Suspect]
     Indication: HODGKIN'S DISEASE
     Dosage: 1 UNK, Q21D
     Route: 042
     Dates: start: 20081027
  7. VINCRISTINE [Suspect]
     Indication: HODGKIN'S DISEASE
     Dosage: 1 UNK, Q21D
     Route: 042
     Dates: start: 20081027
  8. RITUXAN [Suspect]
     Indication: HODGKIN'S DISEASE
     Dosage: 625 MG, Q21D
     Route: 042
     Dates: start: 20081028
  9. CYCLOPHOSPHAMIDE [Suspect]
     Indication: HODGKIN'S DISEASE
     Dosage: 1250 MG, Q21D
     Route: 042
     Dates: start: 20081028
  10. DOXORUBICIN HCL [Suspect]
     Indication: HODGKIN'S DISEASE
     Dosage: 85 MG, Q21D
     Route: 042
     Dates: start: 20081028
  11. VINCRISTINE [Suspect]
     Indication: HODGKIN'S DISEASE
     Dosage: 2 MG, Q21D
     Route: 042
     Dates: start: 20081028
  12. PREDNISONE TAB [Suspect]
     Indication: HODGKIN'S DISEASE
     Dosage: 100 MG, UNK
     Route: 042
     Dates: start: 20081028
  13. HUMALOG [Concomitant]
     Indication: TYPE 1 DIABETES MELLITUS
     Dosage: UNK

REACTIONS (1)
  - FEBRILE NEUTROPENIA [None]
